FAERS Safety Report 16357801 (Version 2)
Quarter: 2019Q2

REPORT INFORMATION
  Report Type: Spontaneous
  Country: US (occurrence: US)
  Receive Date: 20190527
  Receipt Date: 20190528
  Transmission Date: 20190711
  Serious: Yes (Life-Threatening, Hospitalization, Other)
  Sender: FDA-Public Use
  Company Number: US-PFIZER INC-2019217794

PATIENT
  Age: 37 Year
  Sex: Female

DRUGS (3)
  1. LIDOCAINE HCL [Suspect]
     Active Substance: LIDOCAINE HYDROCHLORIDE
     Indication: LOCAL ANAESTHESIA
     Dosage: 1700 MG, UNK (29 MG/KG) (1400 ML TUMESCENT FLUID) (BREASTS (900 MG) AND ABDOMEN/FLANK (800 MG)
  2. EPINEPHRINE. [Concomitant]
     Active Substance: EPINEPHRINE
     Dosage: UNK, (1400 ML TUMESCENT FLUID) (DISTRIBUTED TO THE BREASTS (900 MG) AND ABDOMEN/FLANK (800 MG)
  3. SODIUM BICARBONATE. [Concomitant]
     Active Substance: SODIUM BICARBONATE
     Dosage: UNK (1400 ML TUMESCENT FLUID) (DISTRIBUTED TO THE BREASTS (900 MG) AND ABDOMEN/FLANK (800 MG)

REACTIONS (2)
  - Local anaesthetic systemic toxicity [Recovered/Resolved]
  - Status epilepticus [Recovered/Resolved]
